FAERS Safety Report 9240271 (Version 1)
Quarter: 2013Q1

REPORT INFORMATION
  Report Type: Spontaneous
  Country: US (occurrence: None)
  Receive Date: 20121107
  Receipt Date: 20121107
  Transmission Date: 20140127
  Serious: Yes (Other)
  Sender: FDA-Public Use
  Company Number: AUR-APL-2012-03260

PATIENT
  Age: 65 Year
  Sex: Female
  Weight: 136 kg

DRUGS (10)
  1. VENLAFAXINE (VENLAFAXINE) [Suspect]
     Indication: PRODUCT USED FOR UNKNOWN INDICATION
     Dates: start: 201206, end: 201206
  2. EFFEXOR XR (VENLAFAXINE HYDROCHLORIDE) (75 MILLIGRAM, CAPSULE) (VENLAFAXINE HYDROCHLORIDE) [Suspect]
     Indication: DEPRESSION
     Dosage: 37.5 MG, (37.5 MG, 1 IN 1 D), PO
     Route: 048
  3. ZITHROMAX (AZITHROMYCIN) [Suspect]
     Indication: SINUSITIS
     Dosage: 250 MG (250 MG, 1 IN 1 D)
     Route: 048
  4. AZITHROMYCIN (AZITHROMYCIN) [Suspect]
     Indication: SINUSITIS
  5. FLONASE (FLUTICASONE PROPIONATE) [Concomitant]
  6. DIOVANE (VALSARTAN) [Concomitant]
  7. ATIVAN (LORAZEPAM) [Concomitant]
  8. CLARITIN (GLICLAZIDE) [Concomitant]
  9. PEPCID AC (FAMOTIDINE) [Concomitant]
  10. SYNTHROID (LEVOTHYROXINE SODIUM) [Concomitant]

REACTIONS (3)
  - Palpitations [None]
  - Dizziness [None]
  - Asthenia [None]
